FAERS Safety Report 5692634-1 (Version None)
Quarter: 2008Q2

REPORT INFORMATION
  Report Type: 
  Country: None (occurrence: None)
  Receive Date: 20080401
  Receipt Date: 20080319
  Transmission Date: 20081010
  Serious: Yes (Hospitalization)
  Sender: FDA-Public Use
  Company Number: 2005US001556

PATIENT
  Age: 8 Year
  Sex: Female
  Weight: 21.2 kg

DRUGS (16)
  1. PROGRAF [Suspect]
     Indication: PROPHYLAXIS AGAINST TRANSPLANT REJECTION
     Dosage: 5 MG
     Dates: start: 20050907
  2. ZENAPAX [Suspect]
     Indication: PROPHYLAXIS AGAINST TRANSPLANT REJECTION
     Dosage: 25 MG, 25 MG, IV NOS, 25 MG, IV NOS, 25 MG, IV NOS, 25 MG, IV NOS
     Route: 042
     Dates: start: 20050906, end: 20050906
  3. ZENAPAX [Suspect]
     Indication: PROPHYLAXIS AGAINST TRANSPLANT REJECTION
     Dosage: 25 MG, 25 MG, IV NOS, 25 MG, IV NOS, 25 MG, IV NOS, 25 MG, IV NOS
     Route: 042
     Dates: start: 20050921, end: 20050921
  4. ZENAPAX [Suspect]
     Indication: PROPHYLAXIS AGAINST TRANSPLANT REJECTION
     Dosage: 25 MG, 25 MG, IV NOS, 25 MG, IV NOS, 25 MG, IV NOS, 25 MG, IV NOS
     Route: 042
     Dates: start: 20051010, end: 20051010
  5. ZENAPAX [Suspect]
     Indication: PROPHYLAXIS AGAINST TRANSPLANT REJECTION
     Dosage: 25 MG, 25 MG, IV NOS, 25 MG, IV NOS, 25 MG, IV NOS, 25 MG, IV NOS
     Route: 042
     Dates: start: 20051117, end: 20051117
  6. ZENAPAX [Suspect]
     Indication: PROPHYLAXIS AGAINST TRANSPLANT REJECTION
     Dosage: 25 MG, 25 MG, IV NOS, 25 MG, IV NOS, 25 MG, IV NOS, 25 MG, IV NOS
     Route: 042
     Dates: start: 20051201, end: 20051201
  7. NORVASC [Concomitant]
  8. SEPTRA DS [Concomitant]
  9. MAGNESIUM OXIDE (MAGNESIUM OXIDE) [Concomitant]
  10. NYSTATIN [Concomitant]
  11. VALCYTE [Concomitant]
  12. PREVACID [Concomitant]
  13. AMPICILLIN [Concomitant]
  14. CELLCEPT [Concomitant]
  15. PREDNISONE TAB [Concomitant]
  16. MIRALAX [Concomitant]

REACTIONS (5)
  - BRAIN OEDEMA [None]
  - CONVULSION [None]
  - ENTEROCOCCAL INFECTION [None]
  - HYPOTENSION [None]
  - PYELONEPHRITIS [None]
